FAERS Safety Report 5201675-X (Version None)
Quarter: 2006Q4

REPORT INFORMATION
  Report Type: 
  Country: None (occurrence: None)
  Receive Date: 20061010
  Receipt Date: 20060718
  Transmission Date: 20070319
  Serious: Yes (Hospitalization)
  Sender: FDA-Public Use
  Company Number: 06P-163-0338352-00

PATIENT
  Age: 70 Year
  Sex: Male
  Weight: 104.5 kg

DRUGS (3)
  1. TRICOR [Suspect]
     Indication: BLOOD TRIGLYCERIDES INCREASED
     Dates: start: 19990101, end: 19990101
  2. GEMFIBROZIL [Concomitant]
  3. ROSIGLITAZONE MALEATE [Concomitant]

REACTIONS (1)
  - PANCREATITIS [None]
